FAERS Safety Report 7432216 (Version 5)
Quarter: 2014Q4

REPORT INFORMATION
  Report Type: Spontaneous
  Country: US (occurrence: US)
  Receive Date: 20100624
  Receipt Date: 20141222
  Transmission Date: 20150529
  Serious: Yes (Hospitalization, Other)
  Sender: FDA-Public Use
  Company Number: US-JNJFOC-20100502734

PATIENT
  Age: 40 Year
  Sex: Female

DRUGS (2)
  1. LEVAQUIN [Suspect]
     Active Substance: LEVOFLOXACIN
     Indication: BRONCHITIS
     Route: 048
     Dates: start: 20070629, end: 20081114
  2. LEVAQUIN [Suspect]
     Active Substance: LEVOFLOXACIN
     Indication: PRODUCT USED FOR UNKNOWN INDICATION
     Route: 065
     Dates: start: 200606

REACTIONS (5)
  - Tendon rupture [Not Recovered/Not Resolved]
  - Ligament rupture [Unknown]
  - Tendon rupture [Not Recovered/Not Resolved]
  - Tenosynovitis [Unknown]
  - Tendonitis [Unknown]

NARRATIVE: CASE EVENT DATE: 20080111
